FAERS Safety Report 24286922 (Version 3)
Quarter: 2024Q4

REPORT INFORMATION
  Report Type: Spontaneous
  Country: US (occurrence: US)
  Receive Date: 20240905
  Receipt Date: 20241118
  Transmission Date: 20250114
  Serious: No
  Sender: PFIZER
  Company Number: US-PFIZER INC-PV202400116049

PATIENT
  Age: 56 Year
  Sex: Male

DRUGS (5)
  1. DOCETAXEL [Suspect]
     Active Substance: DOCETAXEL
     Indication: Adenocarcinoma gastric
     Dosage: UNK, CYCLIC (EVERY 3 WEEKS FOR 08 CYCLES)
     Dates: start: 20220414, end: 20220726
  2. DOCETAXEL [Suspect]
     Active Substance: DOCETAXEL
     Indication: Adenocarcinoma gastric
     Dosage: UNK, CYCLIC (EVERY 3 WEEKS FOR 08 CYCLES)
     Dates: start: 20220414, end: 20220726
  3. FLUOROURACIL [Concomitant]
     Active Substance: FLUOROURACIL
     Indication: Chemotherapy
     Dosage: UNK
  4. LEUCOVORIN [Concomitant]
     Active Substance: LEUCOVORIN\LEUCOVORIN CALCIUM
     Indication: Chemotherapy
     Dosage: UNK
  5. OXALIPLATIN [Concomitant]
     Active Substance: OXALIPLATIN
     Indication: Chemotherapy
     Dosage: UNK

REACTIONS (2)
  - Lacrimal structure injury [Not Recovered/Not Resolved]
  - Lacrimation increased [Not Recovered/Not Resolved]

NARRATIVE: CASE EVENT DATE: 20220501
